FAERS Safety Report 19261612 (Version 1)
Quarter: 2021Q2

REPORT INFORMATION
  Report Type: Spontaneous
  Country: BE (occurrence: BE)
  Receive Date: 20210515
  Receipt Date: 20210515
  Transmission Date: 20210717
  Serious: Yes (Other)
  Sender: FDA-Public Use
  Company Number: BE-AMGEN-BELSP2021070208

PATIENT
  Sex: Female

DRUGS (5)
  1. PROLIA [Suspect]
     Active Substance: DENOSUMAB
     Indication: OSTEOPOROSIS
     Dosage: UNK, Q6MO (TWICE?A?YEAR)
     Route: 065
  2. MAGNESIUM [Concomitant]
     Active Substance: MAGNESIUM
  3. VITAMIN D3 [Concomitant]
     Active Substance: CHOLECALCIFEROL
  4. CALCIUM [Concomitant]
     Active Substance: CALCIUM
     Dosage: 1 GRAM
  5. VITAMIN K2 [MENATETRENONE] [Concomitant]

REACTIONS (4)
  - Nerve compression [Unknown]
  - Spinal compression fracture [Unknown]
  - Gait disturbance [Unknown]
  - Headache [Unknown]
